FAERS Safety Report 25431011 (Version 4)
Quarter: 2025Q4

REPORT INFORMATION
  Report Type: Report from Study
  Country: EU (occurrence: EU)
  Receive Date: 20250612
  Receipt Date: 20251006
  Transmission Date: 20260118
  Serious: Yes (Other)
  Sender: ABBVIE
  Company Number: EU-ABBVIE-6320948

PATIENT
  Age: 78 Year
  Sex: Male

DRUGS (11)
  1. FOSCARBIDOPA\FOSLEVODOPA [Suspect]
     Active Substance: FOSCARBIDOPA\FOSLEVODOPA
     Indication: Parkinson^s disease
     Dosage: 240 MG + 12 MG. ?FREQUENCY: LO:1.8;BA:0.51;HI:0.61;LOW:0.38;EX:0.15.
     Route: 058
     Dates: start: 20240807
  2. FOSCARBIDOPA\FOSLEVODOPA [Suspect]
     Active Substance: FOSCARBIDOPA\FOSLEVODOPA
     Dosage: 240 MG + 12 MG. ?FREQUENCY: LO:1.8;BA:0.58;HI:0.62;LOW:0.33;EX:0.3.
     Route: 058
  3. MIRABEGRON [Concomitant]
     Active Substance: MIRABEGRON
     Indication: Product used for unknown indication
     Dosage: FORM STRENGTH: 50 MILLIGRAM, ?FREQUENCY TEXT: 1 TABLET EVERY OTHER DAY, ?START DATE TEXT: BEFORE ...
  4. DONEPEZIL [Concomitant]
     Active Substance: DONEPEZIL
     Indication: Product used for unknown indication
     Dosage: 1 TABLET, ?FORM STRENGTH: 5 MILLIGRAM, ?FREQUENCY TEXT: AT BREAKFAST, ?START DATE TEXT: BEFORE DU...
  5. CIPRALEX [Concomitant]
     Active Substance: ESCITALOPRAM OXALATE
     Indication: Product used for unknown indication
     Dosage: 1 TABLET, ?FORM STRENGTH: 20 MILLIGRAM, ?FREQUENCY TEXT: AT BREAKFAST, ?START DATE TEXT: BEFORE D...
  6. OPICAPONE [Concomitant]
     Active Substance: OPICAPONE
     Indication: Parkinson^s disease
     Dosage: 1 TABLET, ?FORM STRENGTH: 50 MILLIGRAM, ?FREQUENCY TEXT: AT BEDTIME, ?START DATE TEXT: BEFORE DUO...
  7. INDAPAMIDE [Concomitant]
     Active Substance: INDAPAMIDE
     Indication: Hypertension
     Dosage: 1 TABLET, ?FORM STRENGTH: 1.5 MILLIGRAM, ?START DATE TEXT: BEFORE DUODOPA.
  8. XADAGO [Concomitant]
     Active Substance: SAFINAMIDE MESYLATE
     Indication: Parkinson^s disease
     Dosage: 1 TABLET, ?FORM STRENGTH: 100 MILLIGRAM, ?FREQUENCY TEXT: AT BREAKFAST, ?START DATE TEXT: BEFORE ...
  9. EZETIMIBE\SIMVASTATIN [Concomitant]
     Active Substance: EZETIMIBE\SIMVASTATIN
     Indication: Hypercholesterolaemia
     Dosage: 20 MG + 10 MG, ?FREQUENCY TEXT: 1 TAB AT DINNER, ?START DATE TEXT: BEFORE DUODOPA
  10. RIVOTRIL [Concomitant]
     Active Substance: CLONAZEPAM
     Indication: Product used for unknown indication
     Dosage: 2 TABLET, ?FORM STRENGTH: 0.5 MILLIGRAM, ?FREQUENCY TEXT: AT BEDTIME, ?START DATE TEXT: BEFORE DU...
  11. BISOPROLOL [Concomitant]
     Active Substance: BISOPROLOL
     Indication: Hypertension
     Dosage: 1 TABLET, ?FORM STRENGTH: 5 MILLIGRAM, ?START DATE TEXT: BEFORE DUODOPA.

REACTIONS (2)
  - Neoplasm prostate [Not Recovered/Not Resolved]
  - Weight decreased [Not Recovered/Not Resolved]

NARRATIVE: CASE EVENT DATE: 20250101
